FAERS Safety Report 6396312-5 (Version None)
Quarter: 2009Q4

REPORT INFORMATION
  Report Type: 
  Country: None (occurrence: None)
  Receive Date: 20091012
  Receipt Date: 20091002
  Transmission Date: 20100525
  Serious: Yes (Death)
  Sender: FDA-Public Use
  Company Number: CA-CELGENEUS-028-20785-09100448

PATIENT

DRUGS (7)
  1. THALOMID [Suspect]
     Route: 048
  2. THALOMID [Suspect]
     Dosage: 97.3 TO 176.7MG
     Route: 048
  3. THALOMID [Suspect]
     Route: 048
  4. THALOMID [Suspect]
     Dosage: 50-10MG
     Route: 048
  5. RED BLOOD CELLS [Concomitant]
     Route: 051
  6. WHOLE BLOOD [Concomitant]
     Indication: DRUG USE FOR UNKNOWN INDICATION
     Dosage: 1U
     Route: 051
  7. WHOLE BLOOD [Concomitant]
     Dosage: 2U
     Route: 051

REACTIONS (1)
  - DIABETIC COMPLICATION [None]
